FAERS Safety Report 5708571-X (Version None)
Quarter: 2008Q2

REPORT INFORMATION
  Report Type: 
  Country: None (occurrence: None)
  Receive Date: 20080417
  Receipt Date: 20080407
  Transmission Date: 20081010
  Serious: Yes (Other)
  Sender: FDA-Public Use
  Company Number: US-JNJFOC-20080402150

PATIENT
  Age: 14 Year
  Sex: Female

DRUGS (4)
  1. TRINESSA [Suspect]
     Indication: CONTRACEPTION
  2. TRINESSA [Suspect]
     Indication: OVARIAN CYST
  3. TYLENOL W/ CODEINE [Concomitant]
     Indication: RASH
  4. ZITHROMAX [Concomitant]
     Indication: RASH

REACTIONS (3)
  - NEPHROLITHIASIS [None]
  - OFF LABEL USE [None]
  - RASH GENERALISED [None]
